FAERS Safety Report 11965065 (Version 1)
Quarter: 2016Q1

REPORT INFORMATION
  Report Type: Spontaneous
  Country: US (occurrence: US)
  Receive Date: 20160127
  Receipt Date: 20160127
  Transmission Date: 20160526
  Serious: No
  Sender: FDA-Public Use
  Company Number: US-ASTRAZENECA-2016SE05617

PATIENT
  Sex: Female
  Weight: 76.2 kg

DRUGS (4)
  1. PULMICORT FLEXHALER [Suspect]
     Active Substance: BUDESONIDE
     Indication: ASPERGILLUS INFECTION
     Route: 055
     Dates: start: 20160112
  2. CORTISONE [Concomitant]
     Active Substance: CORTISONE\HYDROCORTISONE
     Indication: ASPERGILLUS INFECTION
     Route: 048
  3. PULMICORT FLEXHALER [Suspect]
     Active Substance: BUDESONIDE
     Indication: BRONCHIECTASIS
     Route: 055
     Dates: start: 20160112
  4. CORTISONE [Concomitant]
     Active Substance: CORTISONE\HYDROCORTISONE
     Indication: BRONCHIECTASIS
     Route: 048

REACTIONS (2)
  - Haemoptysis [Unknown]
  - Productive cough [Unknown]
